FAERS Safety Report 4559747-9 (Version None)
Quarter: 2005Q1

REPORT INFORMATION
  Report Type: 
  Country: None (occurrence: None)
  Receive Date: 20050114
  Receipt Date: 20040615
  Transmission Date: 20050727
  Serious: Yes (Life-Threatening, Hospitalization)
  Sender: FDA-Public Use
  Company Number: BDI-006192

PATIENT
  Age: 78 Year
  Sex: Female

DRUGS (2)
  1. PROHANCE [Suspect]
     Indication: ARTHRALGIA
     Dosage: 15 ML ONCE IV
     Route: 042
     Dates: start: 20040609, end: 20040609
  2. PROHANCE [Suspect]
     Indication: NUCLEAR MAGNETIC RESONANCE IMAGING
     Dosage: 15 ML ONCE IV
     Route: 042
     Dates: start: 20040609, end: 20040609

REACTIONS (1)
  - CONTRAST MEDIA REACTION [None]
